FAERS Safety Report 4673646-3 (Version None)
Quarter: 2005Q2

REPORT INFORMATION
  Report Type: 
  Country: None (occurrence: None)
  Receive Date: 20050523
  Receipt Date: 20050426
  Transmission Date: 20051028
  Serious: No
  Sender: FDA-Public Use
  Company Number: MED000120

PATIENT
  Sex: Female

DRUGS (1)
  1. LACTATED RINGER'S AND DEXTROSE 5% IN PLASTIC CONTAINER [Suspect]
     Dosage: INTRAVENOUS
     Route: 042
     Dates: start: 20050301

REACTIONS (2)
  - PRURITUS [None]
  - URTICARIA [None]
